FAERS Safety Report 8573388-8 (Version None)
Quarter: 2012Q3

REPORT INFORMATION
  Report Type: 
  Country: None (occurrence: None)
  Receive Date: 20120806
  Receipt Date: 20120726
  Transmission Date: 20120928
  Serious: Yes (Other)
  Sender: FDA-Public Use
  Company Number: FR-BRISTOL-MYERS SQUIBB COMPANY-16670341

PATIENT
  Age: 31 Year
  Sex: Female
  Weight: 68 kg

DRUGS (3)
  1. CITALOPRAM HYDROBROMIDE [Concomitant]
     Indication: DEPRESSION
     Route: 048
     Dates: start: 20120514
  2. ABILIFY [Suspect]
     Indication: BIPOLAR DISORDER
     Dosage: 10 MG DISCMELT TABLETS, REDUCED TO 5MG IN JUN12 2/D (ONE IN THE MORNING, ONE IN THE EVENING)
     Route: 048
     Dates: start: 20120319
  3. STABLON [Concomitant]
     Dates: start: 20120503

REACTIONS (8)
  - DELUSION [None]
  - AGITATION [None]
  - TREATMENT NONCOMPLIANCE [None]
  - DEPRESSION [None]
  - ALOPECIA [None]
  - FEELING ABNORMAL [None]
  - NERVOUSNESS [None]
  - DECREASED APPETITE [None]
